FAERS Safety Report 7901500-X (Version None)
Quarter: 2011Q4

REPORT INFORMATION
  Report Type: 
  Country: None (occurrence: None)
  Receive Date: 20111108
  Receipt Date: 20111031
  Transmission Date: 20120403
  Serious: Yes (Other)
  Sender: FDA-Public Use
  Company Number: GB-ROCHE-1006426

PATIENT
  Sex: Female

DRUGS (12)
  1. FLUTICASONE PROPIONATE/SALMETEROL [Concomitant]
  2. LACTULOSE [Concomitant]
  3. ATORVASTATIN [Concomitant]
  4. ALENDRONIC ACID [Concomitant]
  5. DOXAZOSIN MESYLATE [Concomitant]
  6. VENTOLIN [Concomitant]
  7. ACETAMINOPHEN [Concomitant]
  8. TIOTROPIUM [Concomitant]
  9. LUCENTIS [Suspect]
     Indication: AGE-RELATED MACULAR DEGENERATION
     Route: 050
     Dates: start: 20110714
  10. CALCIUM/VITAMIN D [Concomitant]
  11. ASPIRIN [Concomitant]
  12. AMIODARONE HCL [Concomitant]
     Dates: start: 20080101

REACTIONS (2)
  - SYNCOPE [None]
  - BLOOD PRESSURE DECREASED [None]
